FAERS Safety Report 6907069-0 (Version None)
Quarter: 2010Q3

REPORT INFORMATION
  Report Type: 
  Country: None (occurrence: None)
  Receive Date: 20100804
  Receipt Date: 20080717
  Transmission Date: 20110219
  Serious: Yes (Other)
  Sender: FDA-Public Use
  Company Number: US-PFIZER INC-2008059933

PATIENT
  Sex: Female
  Weight: 81.363 kg

DRUGS (8)
  1. NARDIL [Suspect]
     Indication: DEPRESSION
     Route: 048
     Dates: start: 20060601
  2. NARDIL [Suspect]
     Route: 048
  3. NARDIL [Suspect]
     Route: 048
     Dates: start: 20080706
  4. OTHER NUTRIENTS [Suspect]
  5. SYNTHROID [Concomitant]
  6. KEPPRA [Concomitant]
  7. LORAZEPAM [Concomitant]
  8. ALPRAZOLAM [Concomitant]

REACTIONS (3)
  - CONDITION AGGRAVATED [None]
  - DEPRESSION [None]
  - HYPERTENSIVE CRISIS [None]
